FAERS Safety Report 13040268 (Version 1)
Quarter: 2016Q4

REPORT INFORMATION
  Report Type: Spontaneous
  Country: US (occurrence: US)
  Receive Date: 20161219
  Receipt Date: 20161219
  Transmission Date: 20170207
  Serious: Yes (Hospitalization, Other)
  Sender: FDA-Public Use
  Company Number: US-NOVOPROD-522621

PATIENT
  Age: 73 Year
  Sex: Female
  Weight: 69.39 kg

DRUGS (3)
  1. ALENDRONATE [Suspect]
     Active Substance: ALENDRONATE SODIUM
     Indication: PRODUCT USED FOR UNKNOWN INDICATION
     Dosage: UNK
  2. NOVOLOG MIX 70/30 [Suspect]
     Active Substance: INSULIN ASPART
     Indication: TYPE 2 DIABETES MELLITUS
     Dosage: 42 U, QD (24 UNITS IN THE MORNING AND 18 UNITS AT NIGHT)
     Route: 058
  3. METFORMIN [Suspect]
     Active Substance: METFORMIN HYDROCHLORIDE
     Indication: PRODUCT USED FOR UNKNOWN INDICATION
     Dosage: UNK
     Route: 048

REACTIONS (14)
  - Limb crushing injury [Unknown]
  - Ankle fracture [Unknown]
  - Myocardial infarction [Recovered/Resolved]
  - Blood glucose increased [Recovered/Resolved]
  - Fall [Unknown]
  - Lower limb fracture [Unknown]
  - Femur fracture [Unknown]
  - Fall [Unknown]
  - Blood glucose fluctuation [Not Recovered/Not Resolved]
  - Ankle fracture [Unknown]
  - Fall [Unknown]
  - Device breakage [Unknown]
  - Loss of consciousness [Recovered/Resolved]
  - Hypoglycaemic unconsciousness [Not Recovered/Not Resolved]

NARRATIVE: CASE EVENT DATE: 2015
